FAERS Safety Report 16734661 (Version 1)
Quarter: 2019Q3

REPORT INFORMATION
  Report Type: Spontaneous
  Country: GR (occurrence: GR)
  Receive Date: 20190823
  Receipt Date: 20190823
  Transmission Date: 20191005
  Serious: Yes (Death, Hospitalization, Other)
  Sender: FDA-Public Use
  Company Number: GR-MYLANLABS-2019M1077453

PATIENT
  Age: 66 Year
  Sex: Female

DRUGS (2)
  1. CAPECITABINE. [Suspect]
     Active Substance: CAPECITABINE
     Indication: ADENOCARCINOMA OF COLON
     Dosage: FROM DAY 1- DAY 14, IN A 21 DAY CYCLE; PART OF CAPOX CHEMOTHERAPY REGIMEN
     Route: 065
  2. OXALIPLATIN. [Concomitant]
     Active Substance: OXALIPLATIN
     Indication: ADENOCARCINOMA OF COLON
     Dosage: ON DAY 1, IN A 21 DAY CYCLE; PART OF CAPOX CHEMOTHERAPY REGIMEN
     Route: 065

REACTIONS (17)
  - Atrial fibrillation [Fatal]
  - Septic shock [Fatal]
  - Cardiac failure [Fatal]
  - Colitis [Unknown]
  - Toxicity to various agents [Fatal]
  - Respiratory failure [Fatal]
  - Congestive cardiomyopathy [Fatal]
  - Pancytopenia [Recovered/Resolved]
  - Generalised tonic-clonic seizure [Unknown]
  - Enterocolitis haemorrhagic [Unknown]
  - Cardiogenic shock [Fatal]
  - Diarrhoea haemorrhagic [Unknown]
  - Mucosal inflammation [Unknown]
  - Pericardial effusion [Fatal]
  - Pneumonia [Fatal]
  - Steatohepatitis [Unknown]
  - Diverticulitis [Unknown]
